FAERS Safety Report 19987263 (Version 1)
Quarter: 2021Q4

REPORT INFORMATION
  Report Type: Spontaneous
  Country: JP (occurrence: JP)
  Receive Date: 20211022
  Receipt Date: 20211022
  Transmission Date: 20220303
  Serious: Yes (Other)
  Sender: FDA-Public Use
  Company Number: JP-PFIZER INC-202101405227

PATIENT
  Sex: Male

DRUGS (3)
  1. EFFEXOR [Suspect]
     Active Substance: VENLAFAXINE HYDROCHLORIDE
     Indication: Depression
     Dosage: 75 MG
     Route: 048
  2. AMOXAPINE [Suspect]
     Active Substance: AMOXAPINE
     Dosage: 2 DF
     Route: 048
  3. LITHIUM CARBONATE [Suspect]
     Active Substance: LITHIUM CARBONATE
     Dosage: UNK
     Route: 048

REACTIONS (3)
  - Serotonin syndrome [Unknown]
  - Bipolar disorder [Unknown]
  - Attention deficit hyperactivity disorder [Unknown]
